FAERS Safety Report 5282169-2 (Version None)
Quarter: 2007Q1

REPORT INFORMATION
  Report Type: 
  Country: None (occurrence: None)
  Receive Date: 20070330
  Receipt Date: 20070320
  Transmission Date: 20070707
  Serious: Yes (Hospitalization, Other)
  Sender: FDA-Public Use
  Company Number: JP-PFIZER INC-2007010534

PATIENT
  Sex: Female
  Weight: 42 kg

DRUGS (9)
  1. VFEND [Suspect]
     Indication: CANDIDA SEROLOGY POSITIVE
     Route: 048
     Dates: start: 20070126, end: 20070126
  2. VFEND [Suspect]
     Route: 048
     Dates: start: 20070127, end: 20070131
  3. FULCALIQ [Concomitant]
     Route: 042
  4. GAMMAGARD [Concomitant]
     Indication: INFECTION
     Route: 042
     Dates: start: 20070126, end: 20070128
  5. TAKEPRON [Concomitant]
     Indication: GASTRITIS
     Route: 048
  6. BLOPRESS [Concomitant]
     Indication: HYPERTENSION
     Route: 048
  7. ZOPICLONE [Concomitant]
     Route: 048
     Dates: start: 20070122, end: 20070130
  8. BIOFERMIN R [Concomitant]
     Route: 048
     Dates: start: 20070122, end: 20070130
  9. DOPAMINE HCL [Concomitant]
     Indication: CARDIAC FAILURE
     Dates: start: 20070125, end: 20070220

REACTIONS (1)
  - DEPRESSED LEVEL OF CONSCIOUSNESS [None]
